FAERS Safety Report 4949520-1 (Version None)
Quarter: 2006Q1

REPORT INFORMATION
  Report Type: 
  Country: None (occurrence: None)
  Receive Date: 20060316
  Receipt Date: 20060303
  Transmission Date: 20060701
  Serious: Yes (Death)
  Sender: FDA-Public Use
  Company Number: 430001L06USA

PATIENT
  Age: 20 Year
  Sex: Female

DRUGS (2)
  1. NOVANTRONE [Suspect]
     Indication: ACUTE LYMPHOCYTIC LEUKAEMIA
     Dosage: NOT REPORTED, NOT REPORTED,
  2. CYCLOPHOSPHAMIDE [Suspect]
     Indication: ACUTE LYMPHOCYTIC LEUKAEMIA
     Dosage: NOT REPORTED, NOT REPORTED,

REACTIONS (2)
  - ALLOGENIC BONE MARROW TRANSPLANTATION THERAPY [None]
  - CARDIOGENIC SHOCK [None]
